FAERS Safety Report 8082059-6 (Version None)
Quarter: 2012Q1

REPORT INFORMATION
  Report Type: 
  Country: None (occurrence: None)
  Receive Date: 20120127
  Receipt Date: 20110225
  Transmission Date: 20120608
  Serious: No
  Sender: FDA-Public Use
  Company Number: US-ABBOTT-11P-163-0708031-00

PATIENT
  Sex: Female
  Weight: 95.34 kg

DRUGS (3)
  1. HUMIRA [Suspect]
     Route: 058
     Dates: start: 20100901
  2. HUMIRA [Suspect]
     Route: 058
     Dates: start: 20091201, end: 20100901
  3. HUMIRA [Suspect]
     Indication: ANKYLOSING SPONDYLITIS
     Route: 058
     Dates: start: 20090201, end: 20091201

REACTIONS (6)
  - PARAESTHESIA [None]
  - DRUG INEFFECTIVE [None]
  - GINGIVAL BLEEDING [None]
  - INJECTION SITE PAIN [None]
  - ARTHRALGIA [None]
  - ARTHROPATHY [None]
